FAERS Safety Report 8825067 (Version 1)
Quarter: 2012Q4

REPORT INFORMATION
  Report Type: 
  Country: GB (occurrence: GB)
  Receive Date: 20121004
  Receipt Date: 20121004
  Transmission Date: 20130627
  Serious: Yes (Death)
  Sender: FDA-Public Use
  Company Number: PHHO2012GB006051

PATIENT
  Age: 62 Year
  Sex: Female
  Weight: 107.1 kg

DRUGS (4)
  1. BLINDED NO TREATMENT RECEIVED [Suspect]
     Indication: CHRONIC OBSTRUCTIVE PULMONARY DISEASE
     Dosage: Double blinded
     Dates: start: 20111207, end: 20120330
  2. BLINDED PLACEBO [Suspect]
     Indication: CHRONIC OBSTRUCTIVE PULMONARY DISEASE
     Dosage: Double blinded
     Dates: start: 20111207, end: 20120330
  3. UNSPECIFIED INGREDIENT [Suspect]
     Indication: CHRONIC OBSTRUCTIVE PULMONARY DISEASE
     Dosage: Double blinded
     Dates: start: 20111207, end: 20120330
  4. TIOTROPIUM [Suspect]
     Indication: CHRONIC OBSTRUCTIVE PULMONARY DISEASE
     Dosage: Double blinded
     Dates: start: 20111207, end: 20120330

REACTIONS (1)
  - Acute left ventricular failure [Fatal]
